FAERS Safety Report 21015444 (Version 2)
Quarter: 2025Q3

REPORT INFORMATION
  Report Type: Report from Study
  Country: EG (occurrence: EG)
  Receive Date: 20220628
  Receipt Date: 20250714
  Transmission Date: 20251021
  Serious: Yes (Other)
  Sender: NOVARTIS
  Company Number: EG-NOVARTISPH-NVSC2022EG146141

PATIENT
  Age: 51 Year
  Sex: Female

DRUGS (8)
  1. GILENYA [Suspect]
     Active Substance: FINGOLIMOD HYDROCHLORIDE
     Indication: Multiple sclerosis
     Dosage: 0.5 MG, QD
     Route: 048
     Dates: start: 20220601
  2. Cal-mag [Concomitant]
     Indication: Osteoporosis prophylaxis
     Dosage: UNK, QD
     Route: 048
     Dates: start: 202204
  3. Bon one [Concomitant]
     Indication: Supplementation therapy
     Dosage: UNK, QD
     Route: 048
     Dates: start: 202204
  4. FOLIC ACID [Concomitant]
     Active Substance: FOLIC ACID
     Indication: White blood cell count
     Dosage: UNK, QD
     Route: 048
     Dates: start: 202204
  5. Duloxeprin [Concomitant]
     Indication: Hypoaesthesia
     Dosage: UNK, QD
     Route: 048
     Dates: start: 202204
  6. Myofen [Concomitant]
     Indication: Muscle relaxant therapy
     Dosage: UNK, QD
     Route: 048
     Dates: start: 202204
  7. Ambezim [Concomitant]
     Indication: Oedema
     Dosage: UNK, QD
     Route: 048
     Dates: start: 20220616
  8. Extrauma dna [Concomitant]
     Indication: Oedema
     Route: 061
     Dates: start: 20220616

REACTIONS (8)
  - Multiple sclerosis [Not Recovered/Not Resolved]
  - Limb discomfort [Not Recovered/Not Resolved]
  - Hypoaesthesia [Not Recovered/Not Resolved]
  - Fall [Not Recovered/Not Resolved]
  - Burning sensation [Not Recovered/Not Resolved]
  - Nasal injury [Recovered/Resolved]
  - Contusion [Recovered/Resolved]
  - Drug ineffective [Not Recovered/Not Resolved]

NARRATIVE: CASE EVENT DATE: 20220601
